FAERS Safety Report 4791900-1 (Version None)
Quarter: 2005Q4

REPORT INFORMATION
  Report Type: 
  Country: None (occurrence: None)
  Receive Date: 20051007
  Receipt Date: 20050927
  Transmission Date: 20060501
  Serious: Yes (Hospitalization)
  Sender: FDA-Public Use
  Company Number: PHHO2005JP15292

PATIENT
  Age: 73 Year
  Sex: Male
  Weight: 60 kg

DRUGS (3)
  1. DIOVAN [Suspect]
     Indication: HYPERTENSION
     Dosage: 40 MG / DAY
     Route: 048
     Dates: start: 20030324, end: 20040428
  2. AMARYL [Concomitant]
     Indication: DIABETES MELLITUS
     Dosage: 1 MG, UNK
     Route: 048
     Dates: start: 20030219, end: 20040428
  3. BASEN [Concomitant]
     Indication: DIABETES MELLITUS
     Dosage: 0.4 MG, UNK
     Route: 048
     Dates: start: 20030219, end: 20040428

REACTIONS (3)
  - GASTRIC CANCER [None]
  - ODYNOPHAGIA [None]
  - SURGERY [None]
